FAERS Safety Report 7466994-5 (Version None)
Quarter: 2011Q2

REPORT INFORMATION
  Report Type: 
  Country: None (occurrence: None)
  Receive Date: 20110509
  Receipt Date: 20101019
  Transmission Date: 20111010
  Serious: Yes (Other)
  Sender: FDA-Public Use
  Company Number: US-ALEXION-A201001123

PATIENT
  Sex: Male
  Weight: 118.82 kg

DRUGS (5)
  1. SOLIRIS [Suspect]
     Indication: PAROXYSMAL NOCTURNAL HAEMOGLOBINURIA
     Dosage: 600 MG, QW
     Route: 042
     Dates: start: 20080319
  2. SOLIRIS [Suspect]
     Dosage: 900 MG, Q10 DAYS
     Route: 042
     Dates: start: 20100910
  3. TUMS                               /00108001/ [Concomitant]
     Dosage: 500 MG, QD, PRN
     Route: 048
  4. SOLIRIS [Suspect]
     Dosage: 900 MG, Q2W
     Route: 042
     Dates: start: 20100412, end: 20100101
  5. M.V.I. [Concomitant]
     Dosage: UNK
     Route: 048

REACTIONS (12)
  - EAR INFECTION [None]
  - PULMONARY EMBOLISM [None]
  - BLOOD POTASSIUM INCREASED [None]
  - NASOPHARYNGITIS [None]
  - DEEP VEIN THROMBOSIS [None]
  - EAR PAIN [None]
  - BLOOD LACTATE DEHYDROGENASE INCREASED [None]
  - RHINORRHOEA [None]
  - LOWER RESPIRATORY TRACT INFECTION [None]
  - HAEMOGLOBIN DECREASED [None]
  - URINE COLOUR ABNORMAL [None]
  - DYSPNOEA [None]
